FAERS Safety Report 13602092 (Version 2)
Quarter: 2017Q3

REPORT INFORMATION
  Report Type: Spontaneous
  Country: US (occurrence: US)
  Receive Date: 20170601
  Receipt Date: 20170718
  Transmission Date: 20171127
  Serious: No
  Sender: FDA-Public Use
  Company Number: US-ASTRAZENECA-2017SE57146

PATIENT
  Age: 55 Year
  Sex: Female
  Weight: 89.8 kg

DRUGS (1)
  1. BYDUREON [Suspect]
     Active Substance: EXENATIDE
     Indication: TYPE 2 DIABETES MELLITUS
     Route: 058
     Dates: start: 2016

REACTIONS (4)
  - Diarrhoea [Not Recovered/Not Resolved]
  - Weight decreased [Unknown]
  - Device malfunction [Unknown]
  - Hypophagia [Unknown]

NARRATIVE: CASE EVENT DATE: 2016
